FAERS Safety Report 6538754-0 (Version None)
Quarter: 2010Q1

REPORT INFORMATION
  Report Type: 
  Country: None (occurrence: None)
  Receive Date: 20100114
  Receipt Date: 20100114
  Transmission Date: 20100710
  Serious: Yes (Disabling)
  Sender: FDA-Public Use
  Company Number: None

PATIENT
  Age: 83 Year
  Sex: Female
  Weight: 64 kg

DRUGS (1)
  1. VITAMIN K1 [Suspect]
     Indication: INTERNATIONAL NORMALISED RATIO INCREASED
     Dosage: 10 MG ONE TIME IV
     Route: 042
     Dates: start: 20100105, end: 20100105

REACTIONS (2)
  - FLUSHING [None]
  - UNRESPONSIVE TO STIMULI [None]
